FAERS Safety Report 19906682 (Version 1)
Quarter: 2021Q4

REPORT INFORMATION
  Report Type: Spontaneous
  Country: FR (occurrence: FR)
  Receive Date: 20211001
  Receipt Date: 20211001
  Transmission Date: 20220303
  Serious: Yes (Hospitalization)
  Sender: FDA-Public Use
  Company Number: FR-ACCORD-238979

PATIENT
  Age: 80 Year
  Sex: Female
  Weight: 89 kg

DRUGS (7)
  1. CARBOPLATIN [Suspect]
     Active Substance: CARBOPLATIN
     Dosage: 385 MG
     Route: 042
     Dates: start: 201502
  2. CARBOPLATIN [Suspect]
     Active Substance: CARBOPLATIN
     Dosage: 385 MG
     Route: 042
     Dates: start: 201608
  3. CARBOPLATIN [Suspect]
     Active Substance: CARBOPLATIN
     Dosage: 385 MG
     Route: 042
     Dates: start: 202001
  4. CARBOPLATIN [Suspect]
     Active Substance: CARBOPLATIN
     Dosage: 410 MG
     Route: 042
     Dates: start: 20200601
  5. CARBOPLATIN [Suspect]
     Active Substance: CARBOPLATIN
     Dosage: 385 MG
     Route: 042
     Dates: end: 20210630
  6. ONDANSETRON [Concomitant]
     Active Substance: ONDANSETRON
     Dosage: 8 MG
     Dates: start: 20210630
  7. APREPITANT [Concomitant]
     Active Substance: APREPITANT
     Dosage: 125 MG
     Dates: start: 20210630

REACTIONS (4)
  - Urticaria [Recovered/Resolved]
  - Malaise [Recovered/Resolved]
  - Feeling hot [Recovered/Resolved]
  - Erythema [Recovered/Resolved]

NARRATIVE: CASE EVENT DATE: 20210530
